FAERS Safety Report 6048227-X (Version None)
Quarter: 2009Q1

REPORT INFORMATION
  Report Type: 
  Country: None (occurrence: None)
  Receive Date: 20090123
  Receipt Date: 20090115
  Transmission Date: 20090719
  Serious: Yes (Other)
  Sender: FDA-Public Use
  Company Number: US-ASTRAZENECA-2009UW01335

PATIENT
  Age: 48 Year
  Sex: Female
  Weight: 69.4 kg

DRUGS (8)
  1. ARIMIDEX [Suspect]
     Indication: BREAST CANCER
     Route: 048
     Dates: start: 20050701
  2. RADIATION THERAPY [Suspect]
     Indication: BREAST CANCER
  3. PROZAC [Concomitant]
  4. WELLBUTRIN [Concomitant]
  5. PEPCID [Concomitant]
  6. NORTRIPTYLINE HCL [Concomitant]
  7. VALIUM [Concomitant]
  8. NORCO [Concomitant]

REACTIONS (4)
  - ARTHRALGIA [None]
  - FALL [None]
  - ROTATOR CUFF SYNDROME [None]
  - SHOULDER OPERATION [None]
